FAERS Safety Report 7774148-8 (Version None)
Quarter: 2011Q3

REPORT INFORMATION
  Report Type: 
  Country: None (occurrence: None)
  Receive Date: 20110923
  Receipt Date: 20110916
  Transmission Date: 20111222
  Serious: Yes (Other)
  Sender: FDA-Public Use
  Company Number: BR-PFIZER INC-2011213559

PATIENT
  Age: 64 Year
  Sex: Male

DRUGS (2)
  1. XALATAN [Suspect]
     Indication: GLAUCOMA
  2. XALATAN [Suspect]
     Indication: OCULAR HYPERTENSION
     Dosage: 3 UG, 1X/DAY (1 DROP IN EACH EACH 1X/DAY)
     Route: 047
     Dates: start: 20070101

REACTIONS (1)
  - INTRAOCULAR PRESSURE INCREASED [None]
